FAERS Safety Report 6524416-2 (Version None)
Quarter: 2010Q1

REPORT INFORMATION
  Report Type: 
  Country: None (occurrence: None)
  Receive Date: 20100103
  Receipt Date: 20091228
  Transmission Date: 20100710
  Serious: Yes (Other)
  Sender: FDA-Public Use
  Company Number: US-RB-026296-09

PATIENT
  Age: 54 Year
  Sex: Female

DRUGS (3)
  1. SUBOXONE [Suspect]
     Dosage: 2 TABLETS( UNKNOWN STRENGTH) DAILY
     Route: 060
     Dates: start: 20070101
  2. SUBOXONE [Suspect]
     Dosage: 1 TABLET( UNKNOWN STRENGTH) DAILY
     Route: 060
  3. SEROQUEL [Suspect]
     Indication: INSOMNIA
     Dosage: DOSING INFORMATION UNKNOWN
     Route: 065
     Dates: end: 20091201

REACTIONS (4)
  - DEPRESSION [None]
  - INSOMNIA [None]
  - SUICIDAL IDEATION [None]
  - VISUAL IMPAIRMENT [None]
